FAERS Safety Report 8575612-4 (Version None)
Quarter: 2012Q3

REPORT INFORMATION
  Report Type: 
  Country: None (occurrence: None)
  Receive Date: 20120807
  Receipt Date: 20100630
  Transmission Date: 20120928
  Serious: Yes (Other)
  Sender: FDA-Public Use
  Company Number: PL-ASTELLAS-2012US006712

PATIENT

DRUGS (1)
  1. ERLOTINIB HYDROCHLORIDE [Suspect]
     Indication: NON-SMALL CELL LUNG CANCER
     Dosage: UNK
     Route: 048

REACTIONS (2)
  - VOMITING [None]
  - GRANULOCYTOPENIA [None]
